FAERS Safety Report 6860214-8 (Version None)
Quarter: 2010Q3

REPORT INFORMATION
  Report Type: 
  Country: None (occurrence: None)
  Receive Date: 20100720
  Receipt Date: 20100705
  Transmission Date: 20110219
  Serious: Yes (Hospitalization)
  Sender: FDA-Public Use
  Company Number: PHHY2010JP44783

PATIENT
  Sex: Male
  Weight: 55 kg

DRUGS (11)
  1. DIOVAN [Suspect]
     Dosage: 80 MG, ONCE DAILY
     Route: 048
     Dates: start: 20071204, end: 20071228
  2. DIOVAN [Suspect]
     Dosage: 160 MG, DAILY
     Route: 048
     Dates: start: 20071229, end: 20080201
  3. DIOVAN [Suspect]
     Dosage: 80 MG, ONCE DAILY
     Route: 048
     Dates: start: 20080202, end: 20080828
  4. DIOVAN [Suspect]
     Dosage: 120 MG (IN 2 SEPARATE DOSES), DAILY
     Route: 048
     Dates: start: 20080829, end: 20081016
  5. DIOVAN [Suspect]
     Dosage: 160 MG (IN 2 SEPARATE DOSES), DAILY
     Dates: start: 20081017, end: 20090825
  6. NATRIX [Suspect]
     Dosage: 0.5 MG, DAILY
     Route: 048
     Dates: start: 20090404, end: 20090602
  7. ATELEC [Concomitant]
     Indication: HYPERTENSION
     Dosage: 5 MG, UNK
     Route: 048
     Dates: start: 20060211
  8. ATELEC [Concomitant]
     Dosage: 10 MG, UNK
     Route: 048
  9. ATELEC [Concomitant]
     Dosage: 5 MG, UNK
     Route: 048
     Dates: end: 20090825
  10. NU-LOTAN [Concomitant]
     Indication: HYPERTENSION
     Dosage: 50 MG, UNK
     Route: 048
     Dates: start: 20051125, end: 20071203
  11. FLUITRAN [Concomitant]
     Dosage: 0.5 MG, UNK
     Route: 048
     Dates: start: 20090703, end: 20090825

REACTIONS (7)
  - BLOOD CREATININE INCREASED [None]
  - BLOOD UREA INCREASED [None]
  - BLOOD URIC ACID INCREASED [None]
  - CHOLANGITIS SUPPURATIVE [None]
  - CHOLECYSTECTOMY [None]
  - CHOLELITHIASIS [None]
  - SURGERY [None]
